FAERS Safety Report 14538477 (Version 3)
Quarter: 2018Q2

REPORT INFORMATION
  Report Type: Spontaneous
  Country: US (occurrence: US)
  Receive Date: 20180216
  Receipt Date: 20180607
  Transmission Date: 20180711
  Serious: Yes (Disabling, Other)
  Sender: FDA-Public Use
  Company Number: US-009507513-1802USA006912

PATIENT
  Sex: Female

DRUGS (1)
  1. KEYTRUDA [Suspect]
     Active Substance: PEMBROLIZUMAB
     Indication: ENDOMETRIAL CANCER
     Dosage: UNK
     Route: 042
     Dates: start: 20180130, end: 20180130

REACTIONS (3)
  - Uveitis [Not Recovered/Not Resolved]
  - Product use in unapproved indication [Unknown]
  - Retinal disorder [Unknown]

NARRATIVE: CASE EVENT DATE: 2018
